FAERS Safety Report 9467206 (Version 1)
Quarter: 2013Q3

REPORT INFORMATION
  Report Type: Spontaneous
  Country: ZA (occurrence: ZA)
  Receive Date: 20130821
  Receipt Date: 20130821
  Transmission Date: 20140515
  Serious: Yes (Hospitalization)
  Sender: FDA-Public Use
  Company Number: PHHY2013ZA089043

PATIENT
  Age: 35 Year
  Sex: Female

DRUGS (7)
  1. CLOZAPINE [Suspect]
     Indication: SCHIZOPHRENIA
     Dosage: UNK
  2. CLOZAPINE [Suspect]
     Dosage: 175 MG, UNK
  3. QUETIAPINE [Concomitant]
     Dosage: UNK
  4. HALOPERIDOL [Concomitant]
     Dosage: UNK
  5. ZUCLOPENTHIXOL [Concomitant]
     Dosage: UNK
  6. LITHIUM CARBONATE [Concomitant]
     Dosage: UNK UKN, UNK
  7. PSYCHOTROPIC AGENTS [Concomitant]
     Dosage: UNK UKN, UNK

REACTIONS (4)
  - Intentional self-injury [Recovered/Resolved]
  - Parotid gland inflammation [Recovered/Resolved]
  - Feeling abnormal [Unknown]
  - Somatic delusion [Recovered/Resolved]
